FAERS Safety Report 8197492-1 (Version None)
Quarter: 2012Q1

REPORT INFORMATION
  Report Type: 
  Country: None (occurrence: None)
  Receive Date: 20120309
  Receipt Date: 20120306
  Transmission Date: 20120608
  Serious: Yes (Other)
  Sender: FDA-Public Use
  Company Number: US-BAYER-2012-022395

PATIENT
  Age: 85 Year
  Sex: Female

DRUGS (8)
  1. VITAMIN D [Concomitant]
  2. ALEVE (CAPLET) [Suspect]
     Indication: HEADACHE
     Dosage: 1 DF, BID
     Route: 048
  3. CITALOPRAM HYDROBROMIDE [Concomitant]
  4. ENALAPRIL MALEATE [Concomitant]
  5. FLOMAX [Concomitant]
  6. ACETAMINOPHEN, ASPIRIN AND CAFFEINE [Suspect]
     Indication: HEADACHE
     Dosage: 2 DF, QD
     Route: 048
  7. VALIUM [Concomitant]
  8. ATENOLOL [Concomitant]

REACTIONS (2)
  - HEADACHE [None]
  - RECTAL HAEMORRHAGE [None]
